FAERS Safety Report 5202660-4 (Version None)
Quarter: 2006Q4

REPORT INFORMATION
  Report Type: 
  Country: None (occurrence: None)
  Receive Date: 20061016
  Receipt Date: 20060810
  Transmission Date: 20070319
  Serious: No
  Sender: FDA-Public Use
  Company Number: 2006SP002980

PATIENT
  Age: 57 Year
  Sex: Male
  Weight: 77.1115 kg

DRUGS (4)
  1. LUNESTA [Suspect]
     Indication: INSOMNIA
     Dosage: 2 MG;HS;ORAL
     Route: 048
     Dates: start: 20060809
  2. REQUIP [Concomitant]
  3. VYTORIN [Concomitant]
  4. SONATA [Concomitant]

REACTIONS (1)
  - DYSGEUSIA [None]
